FAERS Safety Report 6631398-1 (Version None)
Quarter: 2010Q1

REPORT INFORMATION
  Report Type: 
  Country: None (occurrence: None)
  Receive Date: 20100312
  Receipt Date: 20100301
  Transmission Date: 20100710
  Serious: Yes (Death)
  Sender: FDA-Public Use
  Company Number: CA-JNJFOC-20100300851

PATIENT
  Sex: Male
  Weight: 48.4 kg

DRUGS (6)
  1. REMICADE [Suspect]
     Indication: ANKYLOSING SPONDYLITIS
     Dosage: 46 INFUSIONS
     Route: 042
  2. METHOTREXATE [Concomitant]
  3. PERCODAN-DEMI [Concomitant]
  4. NABUMETONE [Concomitant]
  5. PARIET [Concomitant]
  6. GABAPENTIN [Concomitant]

REACTIONS (1)
  - DEATH [None]
